FAERS Safety Report 8921160 (Version 1)
Quarter: 2012Q4

REPORT INFORMATION
  Report Type: 
  Country: US (occurrence: US)
  Receive Date: 20121122
  Receipt Date: 20121122
  Transmission Date: 20130627
  Serious: No
  Sender: FDA-Public Use
  Company Number: US-009507513-1211USA008322

PATIENT
  Age: 57 Year
  Sex: Female
  Weight: 57.14 kg

DRUGS (14)
  1. VICTRELIS [Suspect]
     Dosage: 800 mg, q8h with food
     Route: 048
     Dates: start: 2012
  2. RIBAVIRIN [Suspect]
     Dosage: UNK
  3. PEGASYS [Suspect]
     Dosage: 180 mcg/m
  4. LYRICA [Concomitant]
  5. ONDANSETRON [Concomitant]
  6. POLYETHYLENE GLYCOL [Concomitant]
     Dosage: 3350 NF
  7. AMRIX [Concomitant]
  8. HYDROCHLOROT [Concomitant]
  9. HYDROXYZINE HYDROCHLORIDE [Concomitant]
  10. ALAVERT [Concomitant]
  11. SENNA [Concomitant]
  12. VITAMIN D (UNSPECIFIED) [Concomitant]
     Dosage: 1000 unit
  13. COLACE [Concomitant]
  14. XODOL [Concomitant]

REACTIONS (3)
  - Constipation [Not Recovered/Not Resolved]
  - Pruritus generalised [Not Recovered/Not Resolved]
  - Rash [Not Recovered/Not Resolved]
